FAERS Safety Report 9281791 (Version 2)
Quarter: 2013Q4

REPORT INFORMATION
  Report Type: Spontaneous
  Country: US (occurrence: US)
  Receive Date: 20130510
  Receipt Date: 20131011
  Transmission Date: 20140711
  Serious: Yes (Hospitalization)
  Sender: FDA-Public Use
  Company Number: US-B.I. PHARMACEUTICALS,INC./RIDGEFIELD-2013-BI-13036BP

PATIENT
  Sex: Male
  Weight: 113.4 kg

DRUGS (18)
  1. PRADAXA [Suspect]
     Indication: ANTICOAGULANT THERAPY
     Dosage: 300 MG
     Route: 048
     Dates: start: 20120526, end: 20120606
  2. PRADAXA [Suspect]
     Indication: ATRIAL FIBRILLATION
  3. SYMBICORT [Concomitant]
  4. PROAIR [Concomitant]
  5. SPIRIVA [Concomitant]
     Dosage: 18 MCG
  6. ACTOS [Concomitant]
     Dosage: 30 MCG
  7. METFORMIN [Concomitant]
     Dosage: 2000 MCG
  8. POTASSIUM CHLORIDE [Concomitant]
     Dosage: 20 MEQ
  9. ATENOLOL [Concomitant]
     Dosage: 50 MG
  10. CARDIZEM [Concomitant]
     Dosage: 240 MG
  11. LOVASTATIN [Concomitant]
     Dosage: 20 MG
  12. LISINOPRIL [Concomitant]
     Dosage: 40 MG
  13. ZAROXOLYN [Concomitant]
     Dosage: 2.5 MG
  14. ASPIRIN [Concomitant]
     Dosage: 81 MG
  15. PREDNISONE [Concomitant]
  16. LASIX [Concomitant]
     Dosage: 80 MG
  17. GLYBURIDE [Concomitant]
     Dosage: 10 MG
  18. LANTUS [Concomitant]
     Dosage: 16 U

REACTIONS (2)
  - Gastrointestinal haemorrhage [Recovered/Resolved]
  - Anaemia [Unknown]
